FAERS Safety Report 8000756-5 (Version None)
Quarter: 2011Q4

REPORT INFORMATION
  Report Type: 
  Country: None (occurrence: None)
  Receive Date: 20111222
  Receipt Date: 20111219
  Transmission Date: 20120403
  Serious: Yes (Death, Other)
  Sender: FDA-Public Use
  Company Number: US-BRISTOL-MYERS SQUIBB COMPANY-16038648

PATIENT
  Age: 7 Decade
  Sex: Male
  Weight: 130 kg

DRUGS (2)
  1. YERVOY [Suspect]
     Indication: METASTATIC MALIGNANT MELANOMA
     Dosage: DOSE:3RD 10JUN2011,01JUL2011
     Dates: start: 20110519, end: 20110701
  2. HEPARIN [Suspect]

REACTIONS (3)
  - ABDOMINAL WALL HAEMATOMA [None]
  - DIARRHOEA [None]
  - DEATH [None]
